FAERS Safety Report 8242119-3 (Version None)
Quarter: 2012Q1

REPORT INFORMATION
  Report Type: 
  Country: None (occurrence: None)
  Receive Date: 20120314
  Receipt Date: 20100607
  Transmission Date: 20120608
  Serious: No
  Sender: FDA-Public Use
  Company Number: PHHY2010US37458

PATIENT
  Age: 39 Year
  Sex: Male
  Weight: 118.4 kg

DRUGS (8)
  1. HYDROCHLOROTHIAZIDE [Concomitant]
  2. ESKALITH CR [Concomitant]
  3. PAROXETINE [Concomitant]
  4. FANAPT [Suspect]
     Indication: BIPOLAR DISORDER
     Dosage: 6 MG, BID, ORAL; 6 MG, BID, ORAL
     Route: 048
     Dates: start: 20100525
  5. FANAPT [Suspect]
     Indication: BIPOLAR DISORDER
     Dosage: 6 MG, BID, ORAL; 6 MG, BID, ORAL
     Route: 048
     Dates: end: 20100601
  6. PERPHENAZINE [Concomitant]
  7. KLONOPIN [Concomitant]
  8. LIPITOR [Concomitant]

REACTIONS (2)
  - ENURESIS [None]
  - OEDEMA PERIPHERAL [None]
